FAERS Safety Report 4417350-5 (Version None)
Quarter: 2004Q3

REPORT INFORMATION
  Report Type: 
  Country: None (occurrence: None)
  Receive Date: 20040806
  Receipt Date: 20040605
  Transmission Date: 20050211
  Serious: Yes (Other)
  Sender: FDA-Public Use
  Company Number: PHEH2004US06315

PATIENT
  Age: 53 Year
  Sex: Female
  Weight: 113 kg

DRUGS (12)
  1. DIOVAN [Suspect]
     Dosage: 160 MG, QD
     Route: 048
     Dates: start: 20040301
  2. LASIX [Concomitant]
     Dosage: 80 MG, Q AM
  3. GLUCOPHAGE [Concomitant]
  4. ACTOS                                   /USA/ [Concomitant]
  5. GLYBURIDE [Concomitant]
  6. MAXZIDE [Concomitant]
  7. NORVASC [Concomitant]
  8. ALLEGRA [Concomitant]
  9. CELEXA [Concomitant]
  10. METOPROLOL [Concomitant]
  11. ASPIRIN [Concomitant]
  12. VITAMIN E [Concomitant]

REACTIONS (5)
  - ANAPHYLACTIC REACTION [None]
  - INFECTION [None]
  - LEUKOCYTOCLASTIC VASCULITIS [None]
  - RASH [None]
  - SWELLING [None]
